FAERS Safety Report 7635933-6 (Version None)
Quarter: 2011Q3

REPORT INFORMATION
  Report Type: 
  Country: None (occurrence: None)
  Receive Date: 20110719
  Receipt Date: 20110704
  Transmission Date: 20111222
  Serious: Yes (Other)
  Sender: FDA-Public Use
  Company Number: THQ2011A03418

PATIENT
  Age: 69 Year
  Sex: Female

DRUGS (5)
  1. GLICLAZIDE [Concomitant]
  2. COVERSYL (INDAPAMIDE, PERINDOPRIL) [Concomitant]
  3. ACTOS [Suspect]
     Indication: DIABETES MELLITUS
  4. METFORMIN HCL [Concomitant]
  5. UNKNOWN STATING (HMG COA REDUCTASE INHIBITORS) [Concomitant]

REACTIONS (3)
  - BLADDER CANCER [None]
  - HAEMATURIA [None]
  - GOITRE [None]
